FAERS Safety Report 5775347-7 (Version None)
Quarter: 2008Q2

REPORT INFORMATION
  Report Type: 
  Country: None (occurrence: None)
  Receive Date: 20080617
  Receipt Date: 20080612
  Transmission Date: 20081010
  Serious: Yes (Life-Threatening, Other)
  Sender: FDA-Public Use
  Company Number: US-JNJFOC-20080603212

PATIENT
  Age: 38 Year
  Sex: Female

DRUGS (5)
  1. PARAFON FORTE [Suspect]
     Indication: BACK INJURY
     Route: 065
  2. IRON SULFATETHIAMIN COMPOUND TAB [Concomitant]
  3. HYDROCHLOROTHIAZIDE [Concomitant]
  4. PROTONIX [Concomitant]
  5. LOPROX [Concomitant]

REACTIONS (1)
  - ACUTE HEPATIC FAILURE [None]
